FAERS Safety Report 22610426 (Version 1)
Quarter: 2023Q2

REPORT INFORMATION
  Report Type: Spontaneous
  Country: US (occurrence: US)
  Receive Date: 20230616
  Receipt Date: 20230616
  Transmission Date: 20230722
  Serious: No
  Sender: FDA-Public Use
  Company Number: US-ABBVIE-5293367

PATIENT
  Sex: Female

DRUGS (2)
  1. BOTOX COSMETIC [Suspect]
     Active Substance: ONABOTULINUMTOXINA
     Indication: Skin wrinkling
     Dosage: 104 UNITS (52 UNITS + 52 UNITS 14 DAYS LATER)?FREQUENCY TEXT: 14 DAYS
     Route: 065
     Dates: start: 20230517, end: 20230517
  2. BOTOX COSMETIC [Suspect]
     Active Substance: ONABOTULINUMTOXINA
     Indication: Skin wrinkling
     Dosage: 104 UNITS (52 UNITS + 52 UNITS 14 DAYS LATER)?FREQUENCY TEXT: 14 DAYS
     Route: 065
     Dates: start: 20230613, end: 20230613

REACTIONS (1)
  - Therapy non-responder [Recovered/Resolved]

NARRATIVE: CASE EVENT DATE: 20230517
